FAERS Safety Report 8342948-1 (Version None)
Quarter: 2012Q2

REPORT INFORMATION
  Report Type: 
  Country: None (occurrence: None)
  Receive Date: 20120504
  Receipt Date: 20120504
  Transmission Date: 20120825
  Serious: Yes (Life-Threatening)
  Sender: FDA-Public Use
  Company Number: None

PATIENT
  Age: 63 Year
  Sex: Male
  Weight: 59.8 kg

DRUGS (2)
  1. LIDOCAINE [Suspect]
     Indication: SURGERY
     Dosage: 1% IV
     Route: 042
     Dates: start: 20120111, end: 20120111
  2. MIDAZOLAM [Suspect]
     Indication: SURGERY
     Dates: start: 20120111, end: 20120111

REACTIONS (1)
  - ANAPHYLACTIC REACTION [None]
